FAERS Safety Report 5794872-6 (Version None)
Quarter: 2008Q2

REPORT INFORMATION
  Report Type: 
  Country: None (occurrence: None)
  Receive Date: 20080627
  Receipt Date: 20080627
  Transmission Date: 20081010
  Serious: Yes (Other)
  Sender: FDA-Public Use
  Company Number: None

PATIENT
  Age: 31 Year
  Sex: Male
  Weight: 88.4514 kg

DRUGS (2)
  1. ABILIFY [Suspect]
     Indication: AFFECTIVE DISORDER
     Dosage: 10 MG DAILY ONCE DAILY PO
     Route: 048
     Dates: start: 20080609, end: 20080611
  2. ABILIFY [Suspect]
     Indication: BIPOLAR DISORDER
     Dosage: 10 MG DAILY ONCE DAILY PO
     Route: 048
     Dates: start: 20080609, end: 20080611

REACTIONS (5)
  - AGGRESSION [None]
  - AGITATION [None]
  - FATIGUE [None]
  - IMPAIRED WORK ABILITY [None]
  - LETHARGY [None]
